FAERS Safety Report 23274393 (Version 1)
Quarter: 2023Q4

REPORT INFORMATION
  Report Type: Other
  Country: CN (occurrence: None)
  Receive Date: 20231208
  Receipt Date: 20231208
  Transmission Date: 20240110
  Serious: Yes (Other)
  Sender: FDA-Public Use
  Company Number: CN-ROCHE-3467832

PATIENT
  Age: 58 Year
  Sex: Female

DRUGS (11)
  1. BEVACIZUMAB [Suspect]
     Active Substance: BEVACIZUMAB
     Indication: Lung neoplasm malignant
     Dosage: Q21D
     Route: 065
     Dates: start: 20180102, end: 20180507
  2. BEVACIZUMAB [Suspect]
     Active Substance: BEVACIZUMAB
     Route: 065
     Dates: start: 20200613, end: 20210323
  3. OSIMERTINIB [Suspect]
     Active Substance: OSIMERTINIB
     Indication: Lung neoplasm malignant
     Route: 065
  4. PEMETREXED [Suspect]
     Active Substance: PEMETREXED
     Indication: Lung neoplasm malignant
     Route: 065
     Dates: start: 20180102, end: 20180507
  5. CISPLATIN [Suspect]
     Active Substance: CISPLATIN
     Indication: Lung neoplasm malignant
     Route: 065
     Dates: start: 20180102, end: 20180507
  6. PACLITAXEL [Suspect]
     Active Substance: PACLITAXEL
     Indication: Lung neoplasm malignant
     Route: 065
     Dates: start: 20200613, end: 20210323
  7. TISLELIZUMAB [Suspect]
     Active Substance: TISLELIZUMAB
     Indication: Lung neoplasm malignant
     Route: 065
     Dates: start: 20200613, end: 20210323
  8. GEFITINIB [Concomitant]
     Active Substance: GEFITINIB
     Indication: Lung neoplasm malignant
     Route: 065
  9. ETOPOSIDE [Concomitant]
     Active Substance: ETOPOSIDE
  10. CARBOPLATIN [Concomitant]
     Active Substance: CARBOPLATIN
  11. IRINOTECAN [Concomitant]
     Active Substance: IRINOTECAN

REACTIONS (6)
  - Metastases to liver [Recovering/Resolving]
  - Metastases to peritoneum [Recovering/Resolving]
  - Metastases to the mediastinum [Recovering/Resolving]
  - Metastases to lymph nodes [Recovering/Resolving]
  - Disease progression [Recovering/Resolving]
  - Metastasis [Recovering/Resolving]
